FAERS Safety Report 24011658 (Version 1)
Quarter: 2024Q2

REPORT INFORMATION
  Report Type: Spontaneous
  Country: CZ (occurrence: CZ)
  Receive Date: 20240625
  Receipt Date: 20240625
  Transmission Date: 20240716
  Serious: Yes (Hospitalization, Other)
  Sender: FDA-Public Use
  Company Number: CZ-ABBVIE-5792779

PATIENT
  Age: 72 Year
  Sex: Male

DRUGS (4)
  1. AZACITIDINE [Suspect]
     Active Substance: AZACITIDINE
     Indication: Acute myeloid leukaemia
     Dosage: 75 MILLIGRAM/SQ. METER (FREQUENCY TEXT: FROM DAY1 TO DAY7)
     Route: 065
     Dates: start: 202205
  2. AZACITIDINE [Suspect]
     Active Substance: AZACITIDINE
     Dosage: 75 MILLIGRAM/SQ. METER (FREQUENCY TEXT: FROM DAY1 TO DAY7)
     Route: 065
  3. VENETOCLAX [Suspect]
     Active Substance: VENETOCLAX
     Indication: Acute myeloid leukaemia
     Dosage: 400 MILLIGRAM (FREQUENCY TEXT: FROM DAY1 TO DAY28)
     Route: 048
  4. GRANULOCYTE COLONY-STIMULATING FACTOR NOS [Concomitant]
     Active Substance: GRANULOCYTE COLONY-STIMULATING FACTOR NOS
     Indication: Product used for unknown indication
     Dosage: UNK
     Route: 065

REACTIONS (9)
  - Soft tissue necrosis [Unknown]
  - Rotator cuff syndrome [Unknown]
  - Pancytopenia [Unknown]
  - Neutropenia [Unknown]
  - Cellulitis [Unknown]
  - COVID-19 [Unknown]
  - Pyrexia [Unknown]
  - Anaemia [Unknown]
  - Upper respiratory tract infection [Unknown]
